FAERS Safety Report 14482296 (Version 1)
Quarter: 2018Q1

REPORT INFORMATION
  Report Type: Not Available
  Country: US (occurrence: US)
  Receive Date: 20180202
  Receipt Date: 20180202
  Transmission Date: 20180509
  Serious: No
  Sender: FDA-Public Use
  Company Number: US-ANIPHARMA-2017-US-014944

PATIENT
  Age: 46 Year
  Sex: Female

DRUGS (1)
  1. HYDROCORTISONE RECTAL SUSPENSION, USP 7X60 ML [Suspect]
     Active Substance: HYDROCORTISONE
     Dosage: 1 TIME RECTALLY
     Route: 054
     Dates: start: 20171205, end: 20171205

REACTIONS (2)
  - Condition aggravated [Unknown]
  - Rectal haemorrhage [Unknown]

NARRATIVE: CASE EVENT DATE: 20171205
